FAERS Safety Report 20233143 (Version 1)
Quarter: 2021Q4

REPORT INFORMATION
  Report Type: Report from Study
  Country: US (occurrence: US)
  Receive Date: 20211227
  Receipt Date: 20211227
  Transmission Date: 20220303
  Serious: Yes (Hospitalization)
  Sender: FDA-Public Use
  Company Number: US-EXELIXIS-CABO-21046846

PATIENT
  Age: 72 Year
  Sex: Male
  Weight: 79.7 kg

DRUGS (5)
  1. CABOMETYX [Suspect]
     Active Substance: CABOZANTINIB S-MALATE
     Indication: Renal cell carcinoma stage IV
     Dosage: UNK
     Route: 048
  2. CABOMETYX [Suspect]
     Active Substance: CABOZANTINIB S-MALATE
     Dosage: 20 MG, QD
     Route: 048
     Dates: start: 20210920, end: 20211101
  3. DIVALPROEX SODIUM [Concomitant]
     Active Substance: DIVALPROEX SODIUM
  4. ELIQUIS [Concomitant]
     Active Substance: APIXABAN
  5. LEVOTHYROXINE [Concomitant]
     Active Substance: LEVOTHYROXINE

REACTIONS (11)
  - Cognitive disorder [Unknown]
  - Generalised tonic-clonic seizure [Recovered/Resolved]
  - Rectal haemorrhage [Recovered/Resolved]
  - Diarrhoea [Recovering/Resolving]
  - Vomiting projectile [Recovered/Resolved]
  - Dehydration [Recovered/Resolved]
  - Asthenia [Recovering/Resolving]
  - Blood loss anaemia [Recovered/Resolved]
  - Nausea [Unknown]
  - Pyrexia [Unknown]
  - Hypokalaemia [Unknown]

NARRATIVE: CASE EVENT DATE: 20211101
